FAERS Safety Report 25638386 (Version 1)
Quarter: 2025Q3

REPORT INFORMATION
  Report Type: Spontaneous
  Country: US (occurrence: None)
  Receive Date: 20250801
  Receipt Date: 20250801
  Transmission Date: 20251021
  Serious: Yes (Life-Threatening, Hospitalization)
  Sender: FDA-CTU
  Company Number: None

PATIENT
  Age: 61 Year
  Sex: Female
  Weight: 81 kg

DRUGS (2)
  1. AMPICILLIN [Suspect]
     Active Substance: AMPICILLIN
     Indication: Pyelonephritis
     Route: 042
     Dates: start: 20250728, end: 20250728
  2. MACROBID [Suspect]
     Active Substance: NITROFURANTOIN\NITROFURANTOIN MONOHYDRATE

REACTIONS (8)
  - Drug hypersensitivity [None]
  - Urinary tract infection [None]
  - Urine lactic acid increased [None]
  - Slow response to stimuli [None]
  - Hypotension [None]
  - Tachycardia [None]
  - Anaphylactic reaction [None]
  - Treatment failure [None]

NARRATIVE: CASE EVENT DATE: 20250728
